FAERS Safety Report 26042247 (Version 1)
Quarter: 2025Q4

REPORT INFORMATION
  Report Type: Spontaneous
  Country: US (occurrence: None)
  Receive Date: 20251113
  Receipt Date: 20251113
  Transmission Date: 20260118
  Serious: Yes (Congenital Anomaly)
  Sender: FDA-CTU
  Company Number: None

PATIENT
  Age: 34 Year
  Sex: Female

DRUGS (2)
  1. WAKIX [Suspect]
     Active Substance: PITOLISANT HYDROCHLORIDE
     Indication: Ehlers-Danlos syndrome
     Dosage: OTHER QUANTITY : 1 TABLET(S);?
     Route: 048
     Dates: end: 20251106
  2. VITAMINS [Concomitant]
     Active Substance: VITAMINS

REACTIONS (2)
  - Abortion spontaneous [None]
  - Exposure during pregnancy [None]

NARRATIVE: CASE EVENT DATE: 20251110
